FAERS Safety Report 6805025-4 (Version None)
Quarter: 2010Q2

REPORT INFORMATION
  Report Type: 
  Country: None (occurrence: None)
  Receive Date: 20100628
  Receipt Date: 20070914
  Transmission Date: 20101027
  Serious: No
  Sender: FDA-Public Use
  Company Number: US-PFIZER INC-2007060912

PATIENT
  Sex: Male

DRUGS (2)
  1. GEODON [Suspect]
     Indication: AFFECT LABILITY
     Route: 048
     Dates: start: 20070418, end: 20070502
  2. CLONIDINE [Suspect]
     Indication: INSOMNIA
     Dates: start: 20070418, end: 20070502

REACTIONS (2)
  - DRUG PRESCRIBING ERROR [None]
  - HYPERSENSITIVITY [None]
